FAERS Safety Report 21991750 (Version 1)
Quarter: 2023Q1

REPORT INFORMATION
  Report Type: Spontaneous
  Country: CN (occurrence: CN)
  Receive Date: 20230214
  Receipt Date: 20230214
  Transmission Date: 20230417
  Serious: Yes (Other)
  Sender: FDA-Public Use
  Company Number: CN-009507513-2302CHN003030

PATIENT
  Age: 86 Year
  Sex: Male
  Weight: 67 kg

DRUGS (10)
  1. CILASTATIN SODIUM\IMIPENEM [Suspect]
     Active Substance: CILASTATIN SODIUM\IMIPENEM
     Indication: Infection
     Dosage: 0.5 G Q8H
     Route: 041
     Dates: start: 20230126, end: 20230202
  2. ACARBOSE [Concomitant]
     Active Substance: ACARBOSE
     Indication: Type 2 diabetes mellitus
     Dosage: 0.1 G TID
     Route: 048
     Dates: start: 20221228, end: 20230204
  3. RIVAROXABAN [Concomitant]
     Active Substance: RIVAROXABAN
     Indication: Prophylaxis
     Dosage: 10 MG QD
     Route: 048
     Dates: start: 20221228, end: 20230111
  4. ATORVASTATIN CALCIUM [Concomitant]
     Active Substance: ATORVASTATIN CALCIUM
     Indication: Arteriosclerosis
     Dosage: 20 MG QD
     Route: 048
     Dates: start: 20221228, end: 20230204
  5. SODIUM CHLORIDE [Concomitant]
     Active Substance: SODIUM CHLORIDE
     Indication: Medication dilution
     Dosage: 100 ML BID
     Route: 041
     Dates: start: 20221228, end: 20230121
  6. SODIUM CHLORIDE [Concomitant]
     Active Substance: SODIUM CHLORIDE
     Dosage: 250 ML QD
     Route: 041
     Dates: start: 20230104, end: 20230126
  7. SODIUM CHLORIDE [Concomitant]
     Active Substance: SODIUM CHLORIDE
     Dosage: 100 MG Q8H
     Route: 041
     Dates: start: 20230126, end: 20230202
  8. CEFTAZIDIME [Concomitant]
     Active Substance: CEFTAZIDIME
     Indication: Infection
     Dosage: 1 G BID
     Route: 041
     Dates: start: 20221228, end: 20230121
  9. AMIKACIN [Concomitant]
     Active Substance: AMIKACIN
     Indication: Infection
     Dosage: 0.6 G QD
     Route: 041
     Dates: start: 20230104, end: 20230126
  10. EPRISTERIDE [Concomitant]
     Active Substance: EPRISTERIDE
     Indication: Benign prostatic hyperplasia

REACTIONS (9)
  - Epilepsy [Recovered/Resolved]
  - Pneumonia [Unknown]
  - Type 2 diabetes mellitus [Unknown]
  - Atrial fibrillation [Unknown]
  - Cerebral infarction [Unknown]
  - Urinary tract infection [Unknown]
  - Parkinsonism [Unknown]
  - Hypertension [Unknown]
  - Chronic gastritis [Unknown]

NARRATIVE: CASE EVENT DATE: 20230101
